FAERS Safety Report 5341730-7 (Version None)
Quarter: 2007Q2

REPORT INFORMATION
  Report Type: 
  Country: None (occurrence: None)
  Receive Date: 20070529
  Receipt Date: 20070529
  Transmission Date: 20071010
  Serious: Yes (Other)
  Sender: FDA-Public Use
  Company Number: None

PATIENT
  Age: 42 Year
  Sex: Female
  Weight: 79.3795 kg

DRUGS (2)
  1. LEVAQUIN [Suspect]
     Indication: PYELONEPHRITIS ACUTE
     Dosage: UNKNOWN ONCE A DAY X4D IV DRIP
     Route: 041
     Dates: start: 20070515, end: 20070518
  2. LEVAQUIN [Suspect]
     Dosage: 250MG ONCE/DAY X7D PO
     Route: 048
     Dates: start: 20070519, end: 20070525

REACTIONS (6)
  - ARTHRALGIA [None]
  - DIARRHOEA [None]
  - DIZZINESS [None]
  - FATIGUE [None]
  - NAUSEA [None]
  - VOMITING [None]
